FAERS Safety Report 11080294 (Version 1)
Quarter: 2015Q2

REPORT INFORMATION
  Report Type: Spontaneous
  Country: BR (occurrence: BR)
  Receive Date: 20150430
  Receipt Date: 20150430
  Transmission Date: 20150821
  Serious: Yes (Death, Other)
  Sender: FDA-Public Use
  Company Number: BR-ASTRAZENECA-2015SE40120

PATIENT
  Age: 93 Year
  Sex: Female

DRUGS (5)
  1. SEROQUEL [Suspect]
     Active Substance: QUETIAPINE FUMARATE
     Indication: DEPRESSION
     Dosage: UNKNOWN PRESENTATION
     Route: 048
  2. CYMBALTA [Concomitant]
     Active Substance: DULOXETINE HYDROCHLORIDE
     Indication: DEPRESSION
  3. CEBRALAT [Concomitant]
     Active Substance: CILOSTAZOL
  4. LIPITOR [Concomitant]
     Active Substance: ATORVASTATIN CALCIUM
     Indication: VENOUS OCCLUSION
  5. VENALOT [Concomitant]
     Active Substance: COUMARIN\TROXERUTIN

REACTIONS (7)
  - Agitation [Unknown]
  - Respiratory failure [Fatal]
  - Pulmonary oedema [Fatal]
  - Venous occlusion [Unknown]
  - Brain hypoxia [Unknown]
  - Cerebrovascular accident [Fatal]
  - Syncope [Unknown]
